FAERS Safety Report 11716622 (Version 1)
Quarter: 2015Q4

REPORT INFORMATION
  Report Type: Spontaneous
  Country: US (occurrence: US)
  Receive Date: 20151109
  Receipt Date: 20151109
  Transmission Date: 20160304
  Serious: Yes (Other)
  Sender: FDA-Public Use
  Company Number: US-BAYER-2015-455623

PATIENT
  Age: 69 Year
  Sex: Male

DRUGS (2)
  1. NEXAVAR [Suspect]
     Active Substance: SORAFENIB
     Indication: ALLOGENIC BONE MARROW TRANSPLANTATION THERAPY
     Dosage: 600 MG, QD (400-MG IN THE AM AND 200-MG IN THE PM
     Route: 048
     Dates: start: 201408
  2. NEXAVAR [Suspect]
     Active Substance: SORAFENIB
     Indication: STEM CELL TRANSPLANT
     Dosage: 600 MG,  (400-MG IN THE AM AND 200-MG IN THE PM)
     Route: 048
     Dates: start: 201504

REACTIONS (4)
  - Infection [Not Recovered/Not Resolved]
  - Off label use [None]
  - Squamous cell carcinoma [Not Recovered/Not Resolved]
  - Surgery [None]

NARRATIVE: CASE EVENT DATE: 20151019
